FAERS Safety Report 10022078 (Version 1)
Quarter: 2014Q1

REPORT INFORMATION
  Report Type: Spontaneous
  Country: US (occurrence: US)
  Receive Date: 20140319
  Receipt Date: 20140319
  Transmission Date: 20141002
  Serious: Yes (Hospitalization)
  Sender: FDA-Public Use
  Company Number: US-GLAXOSMITHKLINE-A1064529A

PATIENT
  Age: 67 Year
  Sex: Female

DRUGS (9)
  1. ADVAIR HFA [Suspect]
     Indication: CHRONIC OBSTRUCTIVE PULMONARY DISEASE
     Dosage: 1PUFF TWICE PER DAY
     Route: 055
     Dates: start: 2000
  2. VENTOLIN [Suspect]
     Indication: DYSPNOEA
     Dosage: 2PUFF THREE TIMES PER DAY
     Route: 055
     Dates: start: 1999
  3. SPIRIVA [Concomitant]
  4. PROTONIX [Concomitant]
  5. CELEBREX [Concomitant]
  6. INHALER [Concomitant]
  7. ALLERGY MEDICATION [Concomitant]
  8. VITAMIN [Concomitant]
  9. CONCURRENT MEDICATIONS [Concomitant]

REACTIONS (1)
  - Pneumonia [Recovered/Resolved]
